FAERS Safety Report 15704456 (Version 1)
Quarter: 2018Q4

REPORT INFORMATION
  Report Type: Spontaneous
  Country: US (occurrence: US)
  Receive Date: 20181210
  Receipt Date: 20181210
  Transmission Date: 20190205
  Serious: Yes (Hospitalization)
  Sender: FDA-Public Use
  Company Number: US-COVIS PHARMA B.V.-2018COV03867

PATIENT
  Age: 31 Year
  Sex: Female
  Weight: 72.56 kg

DRUGS (5)
  1. PANTOPRAZOLE SODIUM. [Suspect]
     Active Substance: PANTOPRAZOLE SODIUM
     Dosage: 40 MG, 1X/DAY
     Route: 048
     Dates: start: 20180924, end: 20181019
  2. LICORICE ROOT TABLETS [Concomitant]
  3. OMEPRAZOLE MAGNESIUM. [Suspect]
     Active Substance: OMEPRAZOLE MAGNESIUM
  4. TUMS [Concomitant]
     Active Substance: CALCIUM CARBONATE
  5. PANTOPRAZOLE SODIUM. [Suspect]
     Active Substance: PANTOPRAZOLE SODIUM
     Indication: GASTROOESOPHAGEAL REFLUX DISEASE
     Dosage: UNK
     Dates: start: 2017

REACTIONS (5)
  - Vertigo [Not Recovered/Not Resolved]
  - Hot flush [Not Recovered/Not Resolved]
  - Coeliac disease [Not Recovered/Not Resolved]
  - Gastrooesophageal reflux disease [Unknown]
  - Abdominal pain upper [Unknown]

NARRATIVE: CASE EVENT DATE: 20180911
